FAERS Safety Report 25346447 (Version 2)
Quarter: 2025Q2

REPORT INFORMATION
  Report Type: Spontaneous
  Country: FI (occurrence: FI)
  Receive Date: 20250522
  Receipt Date: 20250605
  Transmission Date: 20250716
  Serious: Yes (Other)
  Sender: MYLAN
  Company Number: FI-MYLANLABS-2025M1040678

PATIENT
  Age: 26 Year
  Sex: Female

DRUGS (1)
  1. METHYLPHENIDATE [Suspect]
     Active Substance: METHYLPHENIDATE
     Indication: Attention deficit hyperactivity disorder

REACTIONS (5)
  - Histiocytosis [Recovering/Resolving]
  - Drug abuse [Unknown]
  - Incorrect route of product administration [Unknown]
  - Drug abuser [Unknown]
  - Swelling of eyelid [Recovering/Resolving]
